FAERS Safety Report 7539862-8 (Version None)
Quarter: 2011Q2

REPORT INFORMATION
  Report Type: 
  Country: None (occurrence: None)
  Receive Date: 20110610
  Receipt Date: 20110519
  Transmission Date: 20111010
  Serious: Yes (Hospitalization)
  Sender: FDA-Public Use
  Company Number: US-BAYER-201038557NA

PATIENT
  Age: 23 Year
  Sex: Female
  Weight: 70.295 kg

DRUGS (7)
  1. IBUPROFEN [Concomitant]
  2. PROMETHAZINE [Concomitant]
     Dosage: UNK
     Dates: start: 20030901
  3. TUMS [CALCIUM CARBONATE] [Concomitant]
     Indication: PAIN
     Dosage: UNK
     Dates: start: 20080701, end: 20080801
  4. GAS-X [Concomitant]
     Indication: PAIN
     Dosage: UNK
     Dates: start: 20080701, end: 20080801
  5. HYDROCODONE BITARTRATE [Concomitant]
     Dosage: UNK
     Dates: start: 20030901
  6. YAZ [Suspect]
     Indication: CONTRACEPTION
     Dosage: UNK UNK, QD
     Route: 048
     Dates: start: 20080423, end: 20090114
  7. NEXIUM [Concomitant]
     Dosage: UNK
     Dates: start: 20030901

REACTIONS (6)
  - GALLBLADDER CHOLESTEROLOSIS [None]
  - CHOLECYSTITIS CHRONIC [None]
  - SCAR [None]
  - CHOLELITHIASIS [None]
  - BILIARY COLIC [None]
  - CHOLECYSTITIS [None]
